FAERS Safety Report 4864573-7 (Version None)
Quarter: 2005Q4

REPORT INFORMATION
  Report Type: 
  Country: None (occurrence: None)
  Receive Date: 20051222
  Receipt Date: 20030128
  Transmission Date: 20060501
  Serious: Yes (Other)
  Sender: FDA-Public Use
  Company Number: FR-ABBOTT-03P-056-0209767-00

PATIENT
  Sex: Female
  Weight: 92.2 kg

DRUGS (2)
  1. SIBUTRAL [Suspect]
     Indication: OBESITY
     Route: 048
     Dates: start: 20020301
  2. SIBUTRAL [Suspect]
     Route: 048
     Dates: start: 20010901

REACTIONS (5)
  - ABORTION INDUCED [None]
  - CEREBELLAR TUMOUR [None]
  - CONGENITAL ANOMALY [None]
  - DRUG EXPOSURE DURING PREGNANCY [None]
  - PREGNANCY [None]
